FAERS Safety Report 18719279 (Version 1)
Quarter: 2021Q1

REPORT INFORMATION
  Report Type: Spontaneous
  Country: US (occurrence: US)
  Receive Date: 20210108
  Receipt Date: 20210108
  Transmission Date: 20210419
  Serious: No
  Sender: FDA-Public Use
  Company Number: US-BAUSCH-BL-2020-035742

PATIENT
  Age: 91 Year
  Sex: Female

DRUGS (2)
  1. LATANOPROST OPHTHALMIC SOLUTION 0.005% [Suspect]
     Active Substance: LATANOPROST
     Indication: GLAUCOMA
     Dosage: APPROXIMATELY 1 YEAR AGO
     Route: 047
     Dates: start: 2019
  2. SYSTANE (HYPROMELLOSE 2910 (4000 MPA.S)) [Concomitant]
     Active Substance: HYPROMELLOSE 2910 (4000 MPA.S)
     Indication: BLEPHARITIS
     Dates: start: 2020

REACTIONS (2)
  - Foreign body sensation in eyes [Recovered/Resolved]
  - Product residue present [Unknown]

NARRATIVE: CASE EVENT DATE: 2020
